FAERS Safety Report 14861826 (Version 1)
Quarter: 2018Q2

REPORT INFORMATION
  Report Type: Spontaneous
  Country: FR (occurrence: FR)
  Receive Date: 20180508
  Receipt Date: 20180508
  Transmission Date: 20180711
  Serious: Yes (Hospitalization)
  Sender: FDA-Public Use
  Company Number: FR-MYLANLABS-2017M1072613

PATIENT
  Age: 76 Year
  Sex: Male

DRUGS (1)
  1. QUETIAPINE MYLAN PHARMA LP 300 MG, COMPRIM? ? LIB?RATION PROLONG?E [Suspect]
     Active Substance: QUETIAPINE FUMARATE
     Indication: BIPOLAR DISORDER
     Dosage: 2 DF, PM

REACTIONS (8)
  - Compulsive sexual behaviour [Unknown]
  - Nightmare [Unknown]
  - Dyskinesia [Unknown]
  - Trigeminal neuralgia [Unknown]
  - Agitation [Not Recovered/Not Resolved]
  - Economic problem [Unknown]
  - Mania [Unknown]
  - Irritability [Unknown]
